FAERS Safety Report 15694001 (Version 1)
Quarter: 2018Q4

REPORT INFORMATION
  Report Type: Spontaneous
  Country: US (occurrence: US)
  Receive Date: 20181206
  Receipt Date: 20181206
  Transmission Date: 20190205
  Serious: No
  Sender: FDA-Public Use
  Company Number: US-GLAXOSMITHKLINE-US2018203253

PATIENT
  Age: 70 Year
  Sex: Female

DRUGS (2)
  1. BREO ELLIPTA [Suspect]
     Active Substance: FLUTICASONE FUROATE\VILANTEROL TRIFENATATE
     Indication: ASTHMA
     Dosage: 200/25 MCG
     Dates: start: 20160131, end: 201701
  2. BREO ELLIPTA [Suspect]
     Active Substance: FLUTICASONE FUROATE\VILANTEROL TRIFENATATE
     Dosage: 100/25 MCG
     Dates: start: 201701

REACTIONS (9)
  - Aphonia [Unknown]
  - Nasopharyngitis [Recovered/Resolved]
  - Burning sensation [Not Recovered/Not Resolved]
  - Pruritus [Not Recovered/Not Resolved]
  - Oropharyngeal pain [Recovered/Resolved]
  - Dysphonia [Unknown]
  - Skin exfoliation [Not Recovered/Not Resolved]
  - Rash [Not Recovered/Not Resolved]
  - Rash macular [Not Recovered/Not Resolved]

NARRATIVE: CASE EVENT DATE: 201804
